FAERS Safety Report 5458583-9 (Version None)
Quarter: 2007Q3

REPORT INFORMATION
  Report Type: 
  Country: None (occurrence: None)
  Receive Date: 20070919
  Receipt Date: 20070412
  Transmission Date: 20080115
  Serious: No
  Sender: FDA-Public Use
  Company Number: US-ASTRAZENECA-2007UW07226

PATIENT
  Age: 50 Year
  Sex: Female
  Weight: 50.8 kg

DRUGS (3)
  1. SEROQUEL [Suspect]
     Indication: SLEEP DISORDER
     Dosage: 50 MG IN AM, 100 MG IN PM
     Route: 048
  2. KLONOPIN [Concomitant]
     Route: 048
  3. CYMBALTA [Concomitant]

REACTIONS (4)
  - DYSPNOEA [None]
  - DYSSTASIA [None]
  - INCREASED APPETITE [None]
  - SENSATION OF PRESSURE [None]
